FAERS Safety Report 23172809 (Version 1)
Quarter: 2023Q4

REPORT INFORMATION
  Report Type: Spontaneous
  Country: US (occurrence: None)
  Receive Date: 20231110
  Receipt Date: 20231110
  Transmission Date: 20240110
  Serious: Yes (Other)
  Sender: FDA-Public Use
  Company Number: 2023A256092

PATIENT
  Age: 64 Year
  Sex: Male
  Weight: 64.4 kg

DRUGS (2)
  1. TAGRISSO [Suspect]
     Active Substance: OSIMERTINIB
     Indication: Lung carcinoma cell type unspecified stage 0
     Route: 048
     Dates: start: 20230922
  2. ALBUTEROL [Suspect]
     Active Substance: ALBUTEROL

REACTIONS (6)
  - Electrocardiogram QT prolonged [Unknown]
  - Contusion [Unknown]
  - Nausea [Unknown]
  - Vomiting [Unknown]
  - Heart rate increased [Unknown]
  - Diarrhoea [Unknown]

NARRATIVE: CASE EVENT DATE: 20231027
